FAERS Safety Report 5905157-9 (Version None)
Quarter: 2008Q4

REPORT INFORMATION
  Report Type: 
  Country: None (occurrence: None)
  Receive Date: 20081001
  Receipt Date: 20080929
  Transmission Date: 20090506
  Serious: Yes (Life-Threatening, Hospitalization)
  Sender: FDA-Public Use
  Company Number: FR-WYE-G02170908

PATIENT
  Sex: Male
  Weight: 14 kg

DRUGS (6)
  1. PARFENAC [Suspect]
     Dosage: UNKNOWN
     Route: 061
     Dates: start: 20080804, end: 20080808
  2. ADVIL [Suspect]
     Dosage: UNKNOWN
     Route: 048
     Dates: start: 20080804, end: 20080808
  3. MEFOXIN [Suspect]
     Dosage: UNKNOWN
     Dates: start: 20080804, end: 20080808
  4. CO-ARTESIANE [Suspect]
     Indication: MALARIA
     Dosage: UNKNOWN
     Route: 048
     Dates: start: 20080804, end: 20080808
  5. FANSIDAR [Suspect]
     Indication: MALARIA
     Dosage: UNKNOWN
     Route: 048
     Dates: start: 20080720, end: 20080727
  6. BRONCHOTHIOL [Suspect]
     Dosage: UNKNOWN
     Route: 048
     Dates: start: 20080804, end: 20080808

REACTIONS (17)
  - ACINETOBACTER INFECTION [None]
  - CANDIDIASIS [None]
  - CHOLESTASIS [None]
  - CYTOLYTIC HEPATITIS [None]
  - DIARRHOEA [None]
  - ENTEROCOCCAL INFECTION [None]
  - FEEDING DISORDER [None]
  - FUNGAL SKIN INFECTION [None]
  - GASTROINTESTINAL INJURY [None]
  - GENERAL PHYSICAL HEALTH DETERIORATION [None]
  - HYPERTENSIVE CRISIS [None]
  - KLEBSIELLA INFECTION [None]
  - LARYNGEAL OEDEMA [None]
  - LIP HAEMORRHAGE [None]
  - PSEUDOMONAS INFECTION [None]
  - SKIN BACTERIAL INFECTION [None]
  - TOXIC EPIDERMAL NECROLYSIS [None]
